FAERS Safety Report 4834944-3 (Version None)
Quarter: 2005Q4

REPORT INFORMATION
  Report Type: 
  Country: None (occurrence: None)
  Receive Date: 20051115
  Receipt Date: 20051104
  Transmission Date: 20060501
  Serious: Yes (Hospitalization, Other)
  Sender: FDA-Public Use
  Company Number: KII-2005-0019528

PATIENT
  Age: 20 Year
  Sex: Female

DRUGS (6)
  1. OXYCONTIN [Suspect]
     Dosage: ORAL
     Route: 048
  2. BENZODIAZEPINE DERIVATIVES [Suspect]
     Dosage: ORAL
     Route: 048
  3. TYLENOL [Suspect]
     Dosage: ORAL
     Route: 048
  4. ACETAMINOPHEN AND OXYCODONE HCL [Suspect]
     Dosage: ORAL
     Route: 048
  5. COCAINE (COCAINE) [Suspect]
     Indication: DRUG ABUSER
     Dosage: INHALATION
     Route: 055
  6. ETHANOL (ETHANOL) [Suspect]
     Dosage: ORAL
     Route: 048

REACTIONS (6)
  - ALCOHOL USE [None]
  - COMA [None]
  - LETHARGY [None]
  - MULTIPLE DRUG OVERDOSE [None]
  - POLYSUBSTANCE ABUSE [None]
  - RESPIRATORY RATE INCREASED [None]
